FAERS Safety Report 24846040 (Version 1)
Quarter: 2025Q1

REPORT INFORMATION
  Report Type: Spontaneous
  Country: US (occurrence: None)
  Receive Date: 20250115
  Receipt Date: 20250115
  Transmission Date: 20250408
  Serious: No
  Sender: FDA-CTU
  Company Number: None

PATIENT
  Sex: Female

DRUGS (11)
  1. KESIMPTA [Suspect]
     Active Substance: OFATUMUMAB
     Indication: Multiple sclerosis
     Dosage: FREQUENCY : MONTHLY;?
     Route: 058
     Dates: start: 20240615
  2. XARELTO [Suspect]
     Active Substance: RIVAROXABAN
  3. ADVAIR DISKU AER [Concomitant]
  4. DULOXETINE [Concomitant]
     Active Substance: DULOXETINE
  5. FENOFIBRATE [Concomitant]
     Active Substance: FENOFIBRATE
  6. FENTANYL [Concomitant]
     Active Substance: FENTANYL
  7. FERROUS SULFATE [Concomitant]
     Active Substance: FERROUS SULFATE
  8. GABAPENTIN [Concomitant]
     Active Substance: GABAPENTIN
  9. ACETAMINOPHEN\HYDROCODONE [Concomitant]
     Active Substance: ACETAMINOPHEN\HYDROCODONE
  10. METOPROLOL TARTRATE [Concomitant]
     Active Substance: METOPROLOL TARTRATE
  11. MYRBETRIQ [Concomitant]
     Active Substance: MIRABEGRON

REACTIONS (1)
  - Internal haemorrhage [None]
